FAERS Safety Report 17582057 (Version 1)
Quarter: 2020Q1

REPORT INFORMATION
  Report Type: Report from Study
  Country: KR (occurrence: KR)
  Receive Date: 20200325
  Receipt Date: 20200325
  Transmission Date: 20200409
  Serious: No
  Sender: FDA-Public Use
  Company Number: KR-CELGENEUS-KOR-20200306486

PATIENT
  Age: 77 Year
  Sex: Male
  Weight: 58 kg

DRUGS (6)
  1. FEDRATINIB [Suspect]
     Active Substance: FEDRATINIB
     Indication: MYELOFIBROSIS
     Dosage: 400 MG X 1 X 1 DAYS
     Route: 048
     Dates: start: 20200117
  2. MEMANTINE. [Concomitant]
     Active Substance: MEMANTINE
     Indication: PROPHYLAXIS
     Dosage: 10 MG X 1 X 1 DAYS
     Route: 048
  3. DESMOPRESSIN [Concomitant]
     Active Substance: DESMOPRESSIN
     Indication: BENIGN PROSTATIC HYPERPLASIA
     Dosage: 0.1 MG X 1 X 1 DAYS
     Route: 048
  4. EUPATILIN [Concomitant]
     Indication: GASTRITIS PROPHYLAXIS
     Dosage: 90 MG X 2 X 1 DAYS
     Route: 048
  5. DEFERASIROX. [Concomitant]
     Active Substance: DEFERASIROX
     Indication: HAEMOSIDEROSIS
     Dosage: 180 MG X 1 X 1 DAYS
     Route: 048
  6. IMIPRAMINE [Concomitant]
     Active Substance: IMIPRAMINE
     Indication: BENIGN PROSTATIC HYPERPLASIA
     Dosage: 25 MG X 1 X 1 DAYS
     Route: 048

REACTIONS (1)
  - Vitamin B1 decreased [Not Recovered/Not Resolved]

NARRATIVE: CASE EVENT DATE: 20200225
